FAERS Safety Report 14751934 (Version 5)
Quarter: 2018Q2

REPORT INFORMATION
  Report Type: Report from Study
  Country: CN (occurrence: CN)
  Receive Date: 20180412
  Receipt Date: 20180517
  Transmission Date: 20180711
  Serious: Yes (Hospitalization)
  Sender: FDA-Public Use
  Company Number: CN-EISAI MEDICAL RESEARCH-EC-2017-033123

PATIENT
  Age: 22 Year
  Sex: Male
  Weight: 63 kg

DRUGS (2)
  1. LENVATINIB [Suspect]
     Active Substance: LENVATINIB
     Indication: THYROID CANCER
     Dosage: PLACEBO
     Route: 048
     Dates: start: 20171010, end: 20171108
  2. LENVATINIB [Suspect]
     Active Substance: LENVATINIB
     Route: 048
     Dates: start: 20171109

REACTIONS (2)
  - Pyrexia [Recovered/Resolved]
  - Epistaxis [Recovered/Resolved]

NARRATIVE: CASE EVENT DATE: 20171112
